FAERS Safety Report 4590605-X (Version None)
Quarter: 2005Q1

REPORT INFORMATION
  Report Type: 
  Country: None (occurrence: None)
  Receive Date: 20050224
  Receipt Date: 20040825
  Transmission Date: 20050727
  Serious: Yes (Hospitalization)
  Sender: FDA-Public Use
  Company Number: PHBS2004GB11254

PATIENT
  Age: 36 Year
  Sex: Female

DRUGS (9)
  1. NICOTINE [Concomitant]
     Route: 062
  2. CYCLOSPORINE [Suspect]
     Indication: COLITIS ULCERATIVE
     Dosage: 175 MG, BID
     Route: 048
  3. CYCLOSPORINE [Suspect]
     Dosage: 2 MG/KG/DAY
     Route: 042
  4. PENTASA [Concomitant]
     Dosage: 3 G/DAY
     Route: 048
  5. PENTASA [Concomitant]
     Dosage: 1 G, BID
     Route: 048
  6. PREDNISOLONE [Concomitant]
     Dosage: 40-60-30 MG/DAY
     Route: 048
  7. PREDNISOLONE [Concomitant]
     Dosage: 60 MG/DAY
     Route: 042
  8. PENTASA [Concomitant]
     Route: 054
  9. AZATHIOPRINE [Concomitant]
     Dosage: 150 MG/DAY
     Route: 048

REACTIONS (8)
  - ANTEPARTUM HAEMORRHAGE [None]
  - BLOOD CREATININE INCREASED [None]
  - CAESAREAN SECTION [None]
  - DRUG EXPOSURE DURING PREGNANCY [None]
  - DRUG LEVEL INCREASED [None]
  - NORMAL NEWBORN [None]
  - PLACENTA PRAEVIA [None]
  - PREMATURE BABY [None]
